FAERS Safety Report 21438526 (Version 3)
Quarter: 2023Q2

REPORT INFORMATION
  Report Type: Report from Study
  Country: CL (occurrence: CL)
  Receive Date: 20221011
  Receipt Date: 20230605
  Transmission Date: 20230722
  Serious: Yes (Other)
  Sender: FDA-Public Use
  Company Number: CL-NOVARTISPH-NVSC2021CL234864

PATIENT
  Age: 52 Year
  Sex: Female

DRUGS (3)
  1. SANDOSTATIN LAR DEPOT [Suspect]
     Active Substance: OCTREOTIDE ACETATE
     Indication: Acromegaly
     Dosage: 20 MG, QMO (AMPOULE)
     Route: 030
     Dates: start: 20180601
  2. SANDOSTATIN LAR DEPOT [Suspect]
     Active Substance: OCTREOTIDE ACETATE
     Dosage: 20 MG, QMO
     Route: 030
     Dates: start: 2018
  3. SANDOSTATIN LAR DEPOT [Suspect]
     Active Substance: OCTREOTIDE ACETATE
     Dosage: UNK (MORE THAN 3 YEARS AGO)
     Route: 065

REACTIONS (7)
  - Diabetes mellitus [Unknown]
  - Ankle fracture [Recovering/Resolving]
  - Blood glucose increased [Unknown]
  - Hypertension [Unknown]
  - Fall [Unknown]
  - Product availability issue [Unknown]
  - Product use in unapproved indication [Unknown]
